FAERS Safety Report 9412525 (Version 2)
Quarter: 2013Q3

REPORT INFORMATION
  Report Type: Spontaneous
  Country: US (occurrence: US)
  Receive Date: 20130722
  Receipt Date: 20130808
  Transmission Date: 20140515
  Serious: Yes (Other)
  Sender: FDA-Public Use
  Company Number: US-BAYER-2013-087295

PATIENT
  Age: 25 Year
  Sex: Female

DRUGS (1)
  1. SKYLA [Suspect]
     Indication: CONTRACEPTION
     Dosage: 14 MCG/24HR, CONT
     Route: 015
     Dates: start: 20130513

REACTIONS (3)
  - Ectopic pregnancy with contraceptive device [Recovered/Resolved]
  - Ruptured ectopic pregnancy [None]
  - Drug ineffective [None]
